FAERS Safety Report 9031015 (Version 1)
Quarter: 2013Q1

REPORT INFORMATION
  Report Type: Spontaneous
  Country: JP (occurrence: JP)
  Receive Date: 20130123
  Receipt Date: 20130123
  Transmission Date: 20140127
  Serious: Yes (Hospitalization)
  Sender: FDA-Public Use
  Company Number: PHHY2012JP077368

PATIENT
  Age: 58 Year
  Sex: Female

DRUGS (12)
  1. RIFAMPICIN SANDOZ [Suspect]
     Indication: PULMONARY TUBERCULOSIS
     Dosage: 300 MG, DAILY
     Route: 048
     Dates: start: 20081209
  2. RIFAMPICIN SANDOZ [Suspect]
     Dosage: 450 MG, DAILY
     Route: 048
  3. RIFAMPICIN SANDOZ [Suspect]
     Dosage: 75 MG, DAILY
     Route: 048
  4. RIFAMPICIN SANDOZ [Suspect]
     Dosage: 450 MG, DAILY
  5. ISONIAZID [Suspect]
     Indication: PULMONARY TUBERCULOSIS
     Dosage: 200 MG, DAILY
     Route: 048
     Dates: start: 20081209
  6. ISONIAZID [Suspect]
     Dosage: 300 MG, DAILY
     Route: 048
  7. ISONIAZID [Suspect]
     Dosage: 100 MG, DAILY
  8. ISONIAZID [Suspect]
     Dosage: 300 MG, DAILY
  9. ETHAMBUTOL [Concomitant]
     Indication: PULMONARY TUBERCULOSIS
     Dosage: 500 MG, DAILY
     Route: 048
  10. ETHAMBUTOL [Concomitant]
     Dosage: 750 MG, DAILY
     Route: 048
  11. PYRAZINAMIDE [Concomitant]
     Indication: PULMONARY TUBERCULOSIS
     Dosage: 1.1 G, DAILY
     Route: 048
  12. STREPTOMYCIN [Concomitant]
     Indication: PULMONARY TUBERCULOSIS
     Route: 030

REACTIONS (8)
  - Toxic epidermal necrolysis [Recovering/Resolving]
  - Stevens-Johnson syndrome [Recovering/Resolving]
  - Rash [Recovering/Resolving]
  - Face oedema [Recovering/Resolving]
  - Erythema [Recovering/Resolving]
  - Dyspnoea [Recovering/Resolving]
  - Oral mucosal eruption [Recovering/Resolving]
  - Epidermolysis [Recovering/Resolving]
